FAERS Safety Report 9029048 (Version 1)
Quarter: 2013Q1

REPORT INFORMATION
  Report Type: Report from Study
  Country: BE (occurrence: BE)
  Receive Date: 20130122
  Receipt Date: 20130122
  Transmission Date: 20140127
  Serious: Yes (Death, Hospitalization, Disabling)
  Sender: FDA-Public Use
  Company Number: BE-ROCHE-1180507

PATIENT
  Age: 65 Year
  Sex: Female

DRUGS (12)
  1. ZELBORAF [Suspect]
     Indication: METASTATIC MALIGNANT MELANOMA
     Route: 048
     Dates: start: 20121003, end: 20121022
  2. APROVEL [Concomitant]
     Route: 048
  3. APO-BISOPROLOL [Concomitant]
     Route: 048
  4. DEPAKINE [Concomitant]
     Route: 048
  5. FRAXODI [Concomitant]
     Route: 058
  6. GLURENORM [Concomitant]
     Route: 048
  7. LORAZEPAM [Concomitant]
     Route: 048
  8. MEDROL [Concomitant]
     Route: 048
  9. MIRTAZAPINE [Concomitant]
     Route: 048
  10. NOZINAN (UNITED KINGDOM) [Concomitant]
     Route: 048
  11. PANTOMED [Concomitant]
     Route: 048
  12. SERTRALINE [Concomitant]
     Route: 048

REACTIONS (3)
  - Neurological decompensation [Not Recovered/Not Resolved]
  - Urinary tract infection [Unknown]
  - Death [Fatal]
